FAERS Safety Report 23587077 (Version 3)
Quarter: 2024Q2

REPORT INFORMATION
  Report Type: Report from Study
  Country: US (occurrence: US)
  Receive Date: 20240301
  Receipt Date: 20240606
  Transmission Date: 20240716
  Serious: Yes (Hospitalization)
  Sender: FDA-Public Use
  Company Number: US-PFIZER INC-202400053135

PATIENT
  Age: 77 Year
  Sex: Male

DRUGS (27)
  1. BRAFTOVI [Suspect]
     Active Substance: ENCORAFENIB
     Dosage: 225 MG, 1X/DAY
     Route: 048
     Dates: start: 20240215
  2. AMLODIPINE [Concomitant]
     Active Substance: AMLODIPINE BESYLATE
  3. ASPIRIN [Concomitant]
     Active Substance: ASPIRIN
  4. BUMETANIDE [Concomitant]
     Active Substance: BUMETANIDE
  5. CALCIUM [Concomitant]
     Active Substance: CALCIUM
  6. CARVEDILOL [Concomitant]
     Active Substance: CARVEDILOL
  7. COENZYME Q10 [Concomitant]
     Active Substance: DIETARY SUPPLEMENT\UBIDECARENONE
  8. FENOFIBRATE [Concomitant]
     Active Substance: FENOFIBRATE
  9. GABAPENTIN [Concomitant]
     Active Substance: GABAPENTIN
  10. INSULIN HUMAN [Concomitant]
     Active Substance: INSULIN HUMAN
  11. NORCO [Concomitant]
     Active Substance: ACETAMINOPHEN\HYDROCODONE BITARTRATE
  12. LIDOCAINE AND PRILOCAINE [Concomitant]
     Active Substance: LIDOCAINE\PRILOCAINE
  13. LISINOPRIL [Concomitant]
     Active Substance: LISINOPRIL
  14. LOMOTIL [Concomitant]
     Active Substance: ATROPINE SULFATE\DIPHENOXYLATE HYDROCHLORIDE
  15. LOPERAMIDE [Concomitant]
     Active Substance: LOPERAMIDE
  16. METFORMIN [Concomitant]
     Active Substance: METFORMIN HYDROCHLORIDE
  17. MONTELUKAST [Concomitant]
     Active Substance: MONTELUKAST SODIUM
  18. FISH OIL\OMEGA-3 FATTY ACIDS [Concomitant]
     Active Substance: FISH OIL\OMEGA-3 FATTY ACIDS
  19. ONDANSETRON [Concomitant]
     Active Substance: ONDANSETRON
  20. PANTOPRAZOLE [Concomitant]
     Active Substance: PANTOPRAZOLE
  21. POTASSIUM [Concomitant]
     Active Substance: POTASSIUM
  22. PROMETHAZINE [Concomitant]
     Active Substance: PROMETHAZINE HYDROCHLORIDE
  23. SENNA LEAF [Concomitant]
     Active Substance: SENNA LEAF
  24. TAMSULOSIN [Concomitant]
     Active Substance: TAMSULOSIN
  25. VENLAFAXINE [Concomitant]
     Active Substance: VENLAFAXINE HYDROCHLORIDE
  26. ZETIA [Concomitant]
     Active Substance: EZETIMIBE
  27. CETUXIMAB [Concomitant]
     Active Substance: CETUXIMAB
     Route: 042

REACTIONS (3)
  - Urinary retention [Not Recovered/Not Resolved]
  - Nasal congestion [Recovered/Resolved]
  - Pyrexia [Unknown]
